FAERS Safety Report 6536270-3 (Version None)
Quarter: 2010Q1

REPORT INFORMATION
  Report Type: 
  Country: None (occurrence: None)
  Receive Date: 20100106
  Receipt Date: 20091229
  Transmission Date: 20100710
  Serious: No
  Sender: FDA-Public Use
  Company Number: 20097686

PATIENT

DRUGS (1)
  1. LIORESAL [Suspect]
     Indication: MUSCLE SPASTICITY
     Dosage: 300.2 MCG, DAILY, INTRATHECAL
     Route: 037

REACTIONS (4)
  - DEVICE CONNECTION ISSUE [None]
  - IMPLANT SITE EFFUSION [None]
  - INFECTION [None]
  - WOUND DECOMPOSITION [None]
